FAERS Safety Report 7757912-0 (Version None)
Quarter: 2011Q3

REPORT INFORMATION
  Report Type: 
  Country: None (occurrence: None)
  Receive Date: 20110918
  Receipt Date: 20101208
  Transmission Date: 20111222
  Serious: Yes (Other)
  Sender: FDA-Public Use
  Company Number: PHHY2010DE92219

PATIENT
  Age: 70 Year
  Sex: Female

DRUGS (4)
  1. COUMADIN [Concomitant]
  2. HORMONE ANTAGONISTS AND RELATED AGENTS [Concomitant]
  3. PAMIDRONATE DISODIUM [Suspect]
     Dosage: UNK UKN, UNK
     Route: 042
  4. ZOLEDRONIC [Suspect]
     Dosage: UNK UKN, UNK

REACTIONS (2)
  - ABSCESS [None]
  - OSTEONECROSIS OF JAW [None]
